FAERS Safety Report 7624200-2 (Version None)
Quarter: 2011Q3

REPORT INFORMATION
  Report Type: 
  Country: None (occurrence: None)
  Receive Date: 20110720
  Receipt Date: 20110720
  Transmission Date: 20111222
  Serious: Yes (Hospitalization)
  Sender: FDA-Public Use
  Company Number: None

PATIENT
  Sex: Female
  Weight: 881.78 kg

DRUGS (17)
  1. CARBOPLATIN [Suspect]
     Indication: LUNG NEOPLASM MALIGNANT
     Dosage: AUC 6
     Route: 041
     Dates: start: 20110713, end: 20110713
  2. MELATONIN [Interacting]
  3. ASCORBIC ACID [Interacting]
     Route: 048
  4. OXYCODONE HCL EXTENDED-RELEASE [Interacting]
     Route: 048
  5. DEXAMETHASONE [Interacting]
     Route: 048
  6. BEVACIZUMAB [Concomitant]
     Route: 041
  7. HYDROCODONE BITARTRATE AND ACETAMINOPHEN [Interacting]
     Route: 048
  8. CODEINE-GUAIFENESIN [Interacting]
     Route: 048
  9. CAFFINE [Interacting]
     Route: 048
  10. PACLITAXEL [Concomitant]
     Indication: LUNG NEOPLASM MALIGNANT
     Dosage: 200 MG/M2
     Route: 041
     Dates: start: 20110713, end: 20110713
  11. LORAZEPAM [Interacting]
     Route: 048
  12. ONDANSETRON [Interacting]
     Route: 048
  13. OXYCODONE HCL [Interacting]
     Route: 048
  14. VITAMIN A [Interacting]
     Route: 048
  15. KEFLEX [Interacting]
     Route: 048
  16. ZOLOFT [Interacting]
     Route: 048
  17. PROMETHAZINE [Interacting]
     Route: 048

REACTIONS (19)
  - INSOMNIA [None]
  - NO THERAPEUTIC RESPONSE [None]
  - MYALGIA [None]
  - HYPERHIDROSIS [None]
  - BEDRIDDEN [None]
  - CONSTIPATION [None]
  - ABDOMINAL PAIN [None]
  - HANGNAIL [None]
  - STOMATITIS [None]
  - BURNING SENSATION [None]
  - FEELING HOT [None]
  - HYPOPHAGIA [None]
  - FLUID INTAKE REDUCED [None]
  - NAUSEA [None]
  - DECREASED APPETITE [None]
  - NON-CARDIAC CHEST PAIN [None]
  - HAEMATOCHEZIA [None]
  - VOMITING [None]
  - PERFORMANCE STATUS DECREASED [None]
